FAERS Safety Report 4296743-3 (Version None)
Quarter: 2004Q1

REPORT INFORMATION
  Report Type: 
  Country: None (occurrence: None)
  Receive Date: 20040126
  Receipt Date: 20030918
  Transmission Date: 20041129
  Serious: No
  Sender: FDA-Public Use
  Company Number: USA030742291

PATIENT
  Age: 13 Year
  Sex: Male
  Weight: 55 kg

DRUGS (4)
  1. STRATTERA [Suspect]
     Indication: ATTENTION DEFICIT/HYPERACTIVITY DISORDER
     Dosage: 60 MG/DAY
     Dates: start: 20030711
  2. ALLEGRA [Concomitant]
  3. MULTI-VITAMIN [Concomitant]
  4. ALLERGY SHOT [Concomitant]

REACTIONS (8)
  - ABDOMINAL PAIN UPPER [None]
  - AGGRESSION [None]
  - DISTURBANCE IN ATTENTION [None]
  - DRUG INEFFECTIVE [None]
  - DYSPEPSIA [None]
  - FATIGUE [None]
  - NAUSEA [None]
  - VOMITING [None]
